FAERS Safety Report 5866256-3 (Version None)
Quarter: 2008Q3

REPORT INFORMATION
  Report Type: 
  Country: None (occurrence: None)
  Receive Date: 20080829
  Receipt Date: 20080821
  Transmission Date: 20090109
  Serious: Yes (Hospitalization)
  Sender: FDA-Public Use
  Company Number: JP-PFIZER INC-2008070833

PATIENT
  Age: 66 Year
  Sex: Male

DRUGS (10)
  1. CHANTIX [Suspect]
     Indication: SMOKING CESSATION THERAPY
     Dosage: DAILY DOSE:2MG
     Route: 048
     Dates: start: 20080810, end: 20080801
  2. METFORMIN HCL [Concomitant]
     Route: 048
  3. AMARYL [Concomitant]
     Route: 048
  4. LIPITOR [Concomitant]
     Route: 048
  5. ASPIRIN [Concomitant]
     Route: 048
  6. VALSARTAN [Concomitant]
     Route: 048
  7. MUCOSOLVAN [Concomitant]
     Route: 048
  8. UNIPHYL [Concomitant]
     Route: 048
  9. FUROSEMIDE [Concomitant]
     Route: 048
  10. INSULIN ASPART [Concomitant]

REACTIONS (1)
  - LOSS OF CONSCIOUSNESS [None]
